FAERS Safety Report 9848417 (Version 1)
Quarter: 2013Q4

REPORT INFORMATION
  Report Type: Spontaneous
  Country: US (occurrence: None)
  Receive Date: 20131224
  Receipt Date: 20131224
  Transmission Date: 20140711
  Serious: Yes (Other)
  Sender: FDA-Public Use
  Company Number: PHEH2013US022448

PATIENT
  Age: 53 Year
  Sex: Female

DRUGS (2)
  1. MYFORTIC (MYCOPHENOLIC ACID) TABLET, 360MG [Suspect]
     Indication: SYSTEMIC LUPUS ERYTHEMATOSUS
     Dosage: 2 DF, BID (2 TABLETS)
  2. MYFORTIC (MYCOPHENOLIC ACID) TABLET, 360MG [Suspect]
     Indication: OFF LABEL USE
     Dosage: 2 DF, BID (2 TABLETS)

REACTIONS (2)
  - Systemic lupus erythematosus [None]
  - Renal disorder [None]
